FAERS Safety Report 23616337 (Version 1)
Quarter: 2024Q1

REPORT INFORMATION
  Report Type: Spontaneous
  Country: TH (occurrence: TH)
  Receive Date: 20240311
  Receipt Date: 20240311
  Transmission Date: 20240409
  Serious: Yes (Death)
  Sender: FDA-Public Use
  Company Number: TH-RDY-LIT/THA/24/0003862

PATIENT
  Sex: Male

DRUGS (2)
  1. AZACITIDINE [Suspect]
     Active Substance: AZACITIDINE
     Indication: Myelodysplastic syndrome
     Dosage: 12 CYCLES
  2. SABATOLIMAB [Suspect]
     Active Substance: SABATOLIMAB
     Indication: Myelodysplastic syndrome
     Dosage: 12 CYCLES

REACTIONS (2)
  - Disease progression [Fatal]
  - Treatment failure [Fatal]
